FAERS Safety Report 24690614 (Version 1)
Quarter: 2024Q4

REPORT INFORMATION
  Report Type: Spontaneous
  Country: US (occurrence: None)
  Receive Date: 20241202
  Receipt Date: 20241202
  Transmission Date: 20250115
  Serious: Yes (Other)
  Sender: Public
  Company Number: None

PATIENT
  Age: 45 Year
  Sex: Female
  Weight: 126 kg

DRUGS (14)
  1. AZITHROMYCIN [Suspect]
     Active Substance: AZITHROMYCIN
     Indication: Respiratory tract infection
     Dates: start: 20241130, end: 20241201
  2. Lexapro, [Concomitant]
  3. protonix, [Concomitant]
  4. CYMBALTA [Concomitant]
     Active Substance: DULOXETINE HYDROCHLORIDE
  5. seroquel, [Concomitant]
  6. trazadone, [Concomitant]
  7. propranolol, [Concomitant]
  8. imitrex, [Concomitant]
  9. albuteral, [Concomitant]
  10. flovent, [Concomitant]
  11. steroid, [Concomitant]
  12. DEVICE [Concomitant]
     Active Substance: DEVICE
  13. Multivitamin, [Concomitant]
  14. VITAMIN D [Concomitant]
     Active Substance: VITAMIN D NOS

REACTIONS (3)
  - Urticaria [None]
  - Therapy cessation [None]
  - Rash [None]

NARRATIVE: CASE EVENT DATE: 20241202
